FAERS Safety Report 15075385 (Version 1)
Quarter: 2018Q2

REPORT INFORMATION
  Report Type: Spontaneous
  Country: US (occurrence: US)
  Receive Date: 20180627
  Receipt Date: 20180627
  Transmission Date: 20180711
  Serious: No
  Sender: FDA-Public Use
  Company Number: US-SAOL THERAPEUTICS-2018SAO00351

PATIENT
  Age: 50 Year
  Sex: Female

DRUGS (8)
  1. COMPOUNDED BACLOFEN [Suspect]
     Active Substance: BACLOFEN
     Dosage: 102.43 ?G, \DAY
     Dates: start: 20170913
  2. DILAUDID [Suspect]
     Active Substance: HYDROMORPHONE HYDROCHLORIDE
     Dosage: 1.1599 MG, \DAY
     Route: 037
     Dates: start: 20180112
  3. CLONIDINE. [Suspect]
     Active Substance: CLONIDINE
     Dosage: 92.79 ?G, \DAY
     Route: 037
     Dates: start: 20180112
  4. DILAUDID [Suspect]
     Active Substance: HYDROMORPHONE HYDROCHLORIDE
     Dosage: 1.2804 MG, \DAY
     Route: 037
     Dates: start: 20170913
  5. CLONIDINE. [Suspect]
     Active Substance: CLONIDINE
     Dosage: 102.43 ?G, \DAY
     Route: 037
     Dates: start: 20170913
  6. COMPOUNDED BACLOFEN [Suspect]
     Active Substance: BACLOFEN
     Dosage: 92.79 ?G, \DAY
     Route: 037
     Dates: start: 20180112
  7. PRIALT [Suspect]
     Active Substance: ZICONOTIDE ACETATE
     Dosage: 6.402 MG, \DAY
     Route: 037
     Dates: start: 20170913
  8. PRIALT [Suspect]
     Active Substance: ZICONOTIDE ACETATE
     Dosage: 5.800 ?G, \DAY
     Route: 037
     Dates: start: 20180112

REACTIONS (3)
  - Headache [Unknown]
  - Nausea [Unknown]
  - Device failure [Recovered/Resolved]

NARRATIVE: CASE EVENT DATE: 20170718
